FAERS Safety Report 20877520 (Version 9)
Quarter: 2022Q3

REPORT INFORMATION
  Report Type: Spontaneous
  Country: US (occurrence: US)
  Receive Date: 20220526
  Receipt Date: 20220929
  Transmission Date: 20221027
  Serious: No
  Sender: FDA-Public Use
  Company Number: US-PFIZER INC-202200757953

PATIENT
  Age: 50 Year
  Sex: Female

DRUGS (2)
  1. IBRANCE [Suspect]
     Active Substance: PALBOCICLIB
     Dosage: UNK
     Dates: start: 20220412
  2. IBRANCE [Suspect]
     Active Substance: PALBOCICLIB
     Dosage: 125 MG

REACTIONS (21)
  - Back pain [Unknown]
  - Appetite disorder [Unknown]
  - Abdominal discomfort [Unknown]
  - Abdominal pain upper [Unknown]
  - Abdominal discomfort [Unknown]
  - Chest discomfort [Unknown]
  - Limb discomfort [Unknown]
  - Peripheral swelling [Unknown]
  - Rash [Unknown]
  - Pruritus [Unknown]
  - Erythema [Unknown]
  - Fatigue [Unknown]
  - Vaginal haemorrhage [Unknown]
  - Fatigue [Not Recovered/Not Resolved]
  - Decreased appetite [Unknown]
  - Ageusia [Unknown]
  - Arthralgia [Unknown]
  - Gait disturbance [Unknown]
  - Taste disorder [Unknown]
  - Constipation [Unknown]
  - Product dose omission issue [Unknown]

NARRATIVE: CASE EVENT DATE: 20220101
